FAERS Safety Report 4883997-5 (Version None)
Quarter: 2006Q1

REPORT INFORMATION
  Report Type: 
  Country: None (occurrence: None)
  Receive Date: 20060111
  Receipt Date: 20051228
  Transmission Date: 20060701
  Serious: Yes (Hospitalization, Disabling)
  Sender: FDA-Public Use
  Company Number: 2005-02777

PATIENT
  Age: 69 Year
  Sex: Male

DRUGS (7)
  1. IMMUCYST [Suspect]
     Indication: BLADDER CANCER RECURRENT
     Dosage: (81.0 MG)    I.VES., BLADDER
     Route: 043
     Dates: start: 20050909, end: 20051031
  2. LEVOFLOXACIN [Concomitant]
  3. BIOLACTIS (LACTOBACILLUS CASEI) [Concomitant]
  4. NIFEDIPINE [Concomitant]
  5. VALSARTAN [Concomitant]
  6. ASPIRIN [Concomitant]
  7. TEPRENONE [Concomitant]

REACTIONS (3)
  - BLOOD PRESSURE INCREASED [None]
  - REITER'S SYNDROME [None]
  - TUBERCULOSIS [None]
